FAERS Safety Report 6818326-0 (Version None)
Quarter: 2010Q3

REPORT INFORMATION
  Report Type: 
  Country: None (occurrence: None)
  Receive Date: 20100706
  Receipt Date: 20071106
  Transmission Date: 20110219
  Serious: No
  Sender: FDA-Public Use
  Company Number: US-PFIZER INC-2007094334

PATIENT
  Sex: Female
  Weight: 67.3 kg

DRUGS (5)
  1. ZITHROMAX [Suspect]
     Indication: BRONCHITIS
     Dates: start: 20071001, end: 20071028
  2. CHANTIX [Suspect]
     Indication: SMOKING CESSATION THERAPY
     Dates: start: 20071029
  3. LITHIUM CARBONATE [Concomitant]
  4. TOPAMAX [Concomitant]
  5. CELEBREX [Concomitant]

REACTIONS (2)
  - COUGH [None]
  - DRUG INEFFECTIVE [None]
